FAERS Safety Report 8571696-8 (Version None)
Quarter: 2012Q3

REPORT INFORMATION
  Report Type: 
  Country: None (occurrence: None)
  Receive Date: 20120806
  Receipt Date: 20120726
  Transmission Date: 20120928
  Serious: Yes (Hospitalization, Other)
  Sender: FDA-Public Use
  Company Number: JP-JNJFOC-20120109356

PATIENT
  Sex: Female
  Weight: 51 kg

DRUGS (5)
  1. REMICADE [Suspect]
     Route: 042
     Dates: start: 20070329
  2. FOLIC ACID [Concomitant]
     Route: 048
  3. METHOTREXATE [Concomitant]
     Indication: RHEUMATOID ARTHRITIS
     Route: 048
  4. REMICADE [Suspect]
     Dosage: 28 TH DOSE
     Route: 042
     Dates: start: 20110806
  5. REMICADE [Suspect]
     Indication: RHEUMATOID ARTHRITIS
     Route: 042

REACTIONS (4)
  - INTERSTITIAL LUNG DISEASE [None]
  - DOUBLE STRANDED DNA ANTIBODY POSITIVE [None]
  - ANTIBODY TEST POSITIVE [None]
  - DERMATOMYOSITIS [None]
